FAERS Safety Report 14647577 (Version 1)
Quarter: 2018Q1

REPORT INFORMATION
  Report Type: Spontaneous
  Country: US (occurrence: US)
  Receive Date: 20180316
  Receipt Date: 20180316
  Transmission Date: 20180509
  Serious: Yes (Hospitalization)
  Sender: FDA-Public Use
  Company Number: US-CELGENEUS-USA-20180303978

PATIENT
  Sex: Female

DRUGS (2)
  1. THALOMID [Suspect]
     Active Substance: THALIDOMIDE
     Indication: MYELOFIBROSIS
  2. THALOMID [Suspect]
     Active Substance: THALIDOMIDE
     Indication: MARROW HYPERPLASIA
     Dosage: 50 MILLIGRAM
     Route: 048
     Dates: start: 20171220

REACTIONS (1)
  - Adverse drug reaction [Not Recovered/Not Resolved]
